FAERS Safety Report 9691205 (Version 1)
Quarter: 2013Q4

REPORT INFORMATION
  Report Type: Spontaneous
  Country: BR (occurrence: BR)
  Receive Date: 20131115
  Receipt Date: 20131115
  Transmission Date: 20140711
  Serious: Yes (Hospitalization)
  Sender: FDA-Public Use
  Company Number: BR-BAYER-2013-139338

PATIENT
  Age: 28 Year
  Sex: Female
  Weight: 60 kg

DRUGS (2)
  1. YAZ (24) [Suspect]
     Indication: POLYCYSTIC OVARIES
     Dosage: UNK
     Route: 048
     Dates: start: 2011, end: 201310
  2. OMEPRAZOL [Concomitant]
     Indication: PROPHYLAXIS
     Route: 048

REACTIONS (3)
  - Central nervous system neoplasm [Not Recovered/Not Resolved]
  - Amnesia [None]
  - Off label use [None]
